FAERS Safety Report 12949197 (Version 2)
Quarter: 2016Q4

REPORT INFORMATION
  Report Type: Spontaneous
  Country: US (occurrence: US)
  Receive Date: 20161117
  Receipt Date: 20161128
  Transmission Date: 20170207
  Serious: No
  Sender: FDA-Public Use
  Company Number: US-PFIZER INC-2016530672

PATIENT
  Age: 76 Year
  Sex: Male

DRUGS (16)
  1. VITAMIN A [Suspect]
     Active Substance: VITAMIN A
     Dosage: 10000 IU, 1X/DAY
  2. ELIQUIS [Suspect]
     Active Substance: APIXABAN
     Indication: PULMONARY EMBOLISM
     Dosage: 5 MG, 2X/DAY
  3. POTASSIUM CITRATE. [Suspect]
     Active Substance: POTASSIUM CITRATE
     Dosage: 200 MG, 2X/DAY
  4. D-3 [Suspect]
     Active Substance: CHOLECALCIFEROL
     Dosage: 10000 IU, 1X/DAY
  5. VITAMIN C [Suspect]
     Active Substance: ASCORBIC ACID
     Dosage: 1000 MG, 1X/DAY
  6. PREDNISONE. [Suspect]
     Active Substance: PREDNISONE
     Dosage: 10 MG, 4X/DAY
  7. DIPHENOXYLATE HCL + ATROPINE SULFATE [Suspect]
     Active Substance: ATROPINE SULFATE\DIPHENOXYLATE HYDROCHLORIDE
     Dosage: 2.5 MG, 4X/DAY
  8. FLUDROCORTISONE [Suspect]
     Active Substance: FLUDROCORTISONE
     Dosage: 0.1 MG, UNK (3 A WEEK)
  9. PREDNISONE. [Suspect]
     Active Substance: PREDNISONE
     Dosage: UNK (5-50MG)
  10. PROTONIX [Suspect]
     Active Substance: PANTOPRAZOLE SODIUM
     Dosage: 40 MG, 2X/DAY
  11. POTASSIUM CHLORIDE. [Suspect]
     Active Substance: POTASSIUM CHLORIDE
     Dosage: UNK, 1X/DAY
  12. CITRACAL [Suspect]
     Active Substance: CALCIUM CITRATE
     Dosage: 400 MG, 2X/DAY
  13. LASIX [Suspect]
     Active Substance: FUROSEMIDE
     Dosage: 40 MG, 2X/DAY
  14. BACTRIM [Suspect]
     Active Substance: SULFAMETHOXAZOLE\TRIMETHOPRIM
     Dosage: 500 MG, 1X/DAY
  15. VITAMIN B COMPLEX [Suspect]
     Active Substance: CYANOCOBALAMIN\DEXPANTHENOL\NIACINAMIDE\PYRIDOXINE HYDROCHLORIDE\RIBOFLAVIN 5^-PHOSPHATE SODIUM\THIAMINE HYDROCHLORIDE\VITAMIN B COMPLEX
     Dosage: UNK UNK, 1X/DAY
  16. RAPIDFLOX [Concomitant]
     Dosage: 0.4 MG, 1X/DAY

REACTIONS (2)
  - Balance disorder [Unknown]
  - Neuropathy peripheral [Unknown]
